FAERS Safety Report 8137551 (Version 3)
Quarter: 2012Q4

REPORT INFORMATION
  Report Type: 
  Country: US (occurrence: US)
  Receive Date: 20110915
  Receipt Date: 20121126
  Transmission Date: 20130627
  Serious: Yes (Other)
  Sender: FDA-Public Use
  Company Number: US-ROCHE-802088

PATIENT
  Sex: Female
  Weight: 49.94 kg

DRUGS (2)
  1. ACCUTANE [Suspect]
     Indication: ACNE
     Route: 065
     Dates: start: 199910, end: 200108
  2. DEPO-PROVERA [Concomitant]
     Indication: CONTRACEPTION

REACTIONS (8)
  - Colitis ulcerative [Unknown]
  - Depression [Not Recovered/Not Resolved]
  - Injury [Unknown]
  - Proctitis [Unknown]
  - Inflammatory bowel disease [Unknown]
  - Mental disorder [Unknown]
  - Suicidal ideation [Unknown]
  - Irritable bowel syndrome [Unknown]
